FAERS Safety Report 4282721-7 (Version None)
Quarter: 2004Q1

REPORT INFORMATION
  Report Type: 
  Country: None (occurrence: None)
  Receive Date: 20040130
  Receipt Date: 20030403
  Transmission Date: 20041129
  Serious: No
  Sender: FDA-Public Use
  Company Number: US-BRISTOL-MYERS SQUIBB COMPANY-12230207

PATIENT
  Sex: Female

DRUGS (1)
  1. SERZONE [Suspect]
     Indication: DEPRESSION
     Dosage: 300 MG TO 350 MG DAILY FOR 6 MONTHS TO A YEAR
     Route: 048

REACTIONS (1)
  - OEDEMA PERIPHERAL [None]
